FAERS Safety Report 25161858 (Version 2)
Quarter: 2025Q2

REPORT INFORMATION
  Report Type: Spontaneous
  Country: CN (occurrence: CN)
  Receive Date: 20250404
  Receipt Date: 20250608
  Transmission Date: 20250716
  Serious: Yes (Hospitalization)
  Sender: COHERUS
  Company Number: CN-SHANGHAI JUNSHI BIOSCIENCES CO., LTD.-CN2025013534

PATIENT

DRUGS (3)
  1. TORIPALIMAB [Suspect]
     Active Substance: TORIPALIMAB
     Indication: Squamous cell carcinoma of lung
     Dosage: 240 MG (D1, Q21D)
     Route: 041
     Dates: start: 20250319, end: 20250319
  2. LOBAPLATIN [Suspect]
     Active Substance: LOBAPLATIN
     Indication: Squamous cell carcinoma of lung
     Dosage: 40 MG (D2, Q21D)
     Route: 041
     Dates: start: 20250319, end: 20250319
  3. PACLITAXEL [Suspect]
     Active Substance: PACLITAXEL
     Indication: Squamous cell carcinoma of lung
     Dosage: 250 MG(D1), 200MG(D5), 21 DAYS AS 1 CYCLE
     Route: 041
     Dates: start: 20250319, end: 20250319

REACTIONS (2)
  - Myelosuppression [Recovering/Resolving]
  - Anaemia [Recovering/Resolving]

NARRATIVE: CASE EVENT DATE: 20250322
